FAERS Safety Report 5740848-4 (Version None)
Quarter: 2008Q2

REPORT INFORMATION
  Report Type: 
  Country: None (occurrence: None)
  Receive Date: 20080516
  Receipt Date: 20080505
  Transmission Date: 20081010
  Serious: Yes (Other)
  Sender: FDA-Public Use
  Company Number: GB-PFIZER INC-2008010540

PATIENT
  Age: 49 Year
  Sex: Male
  Weight: 91 kg

DRUGS (5)
  1. CHANTIX [Suspect]
     Indication: SMOKING CESSATION THERAPY
     Route: 048
     Dates: start: 20071022, end: 20071221
  2. CO-DYDRAMOL [Concomitant]
     Indication: BACK PAIN
     Route: 048
     Dates: start: 20071116, end: 20071130
  3. DICLOFENAC [Concomitant]
     Indication: BACK PAIN
     Route: 048
     Dates: start: 20071116, end: 20071130
  4. OMEPRAZOLE [Concomitant]
     Route: 048
     Dates: start: 20071116, end: 20071130
  5. ACETAMINOPHEN [Concomitant]
     Indication: BACK PAIN
     Route: 048

REACTIONS (3)
  - BLOOD CHOLESTEROL INCREASED [None]
  - KETOACIDOSIS [None]
  - TYPE 1 DIABETES MELLITUS [None]
